FAERS Safety Report 9677164 (Version 2)
Quarter: 2014Q2

REPORT INFORMATION
  Report Type: Report from Study
  Country: US (occurrence: US)
  Receive Date: 20131108
  Receipt Date: 20140602
  Transmission Date: 20141212
  Serious: Yes (Hospitalization)
  Sender: FDA-Public Use
  Company Number: US-BRISTOL-MYERS SQUIBB COMPANY-19715481

PATIENT
  Age: 25 Year
  Sex: Female
  Weight: 73 kg

DRUGS (30)
  1. CARBOPLATIN [Suspect]
     Indication: BREAST CANCER
     Dosage: 1DF=AUC 6 DAY 3 OF 21 DAY CYCLE
     Route: 042
     Dates: start: 20130719
  2. PACLITAXEL [Suspect]
     Indication: BREAST CANCER
     Dosage: 1DF=DAY 3 OF 21 DAY CYCLE
     Route: 042
     Dates: start: 20130719
  3. METOPROLOL [Concomitant]
     Indication: ATRIOVENTRICULAR SEPTAL DEFECT
     Route: 048
     Dates: start: 2011
  4. METOPROLOL [Concomitant]
     Indication: VENTRICULAR ARRHYTHMIA
     Route: 048
     Dates: start: 2011
  5. TYLENOL [Concomitant]
     Indication: HEADACHE
     Route: 048
     Dates: start: 2000
  6. TYLENOL [Concomitant]
     Indication: MIGRAINE
     Route: 048
     Dates: start: 2000
  7. TYLENOL [Concomitant]
     Indication: PYREXIA
     Route: 048
     Dates: start: 2000
  8. TYLENOL [Concomitant]
     Indication: BONE PAIN
     Route: 048
     Dates: start: 2000
  9. MULTIVITAMIN [Concomitant]
     Indication: VITAMIN SUPPLEMENTATION
     Route: 048
     Dates: start: 2000
  10. ZANTAC [Concomitant]
     Indication: GASTROOESOPHAGEAL REFLUX DISEASE
     Route: 048
     Dates: start: 2000
  11. HYDROCORTISONE CREAM [Concomitant]
     Indication: RASH
     Dates: start: 20130701
  12. BENADRYL [Concomitant]
     Indication: MASTITIS
     Dosage: IV ALSO TKN?1JUL13-ONG?5AUG13-5AUG13?30AUG13-ONG?11JUL2013-
     Route: 048
     Dates: start: 20130701
  13. BENADRYL [Concomitant]
     Indication: PREMEDICATION
     Dosage: IV ALSO TKN?1JUL13-ONG?5AUG13-5AUG13?30AUG13-ONG?11JUL2013-
     Route: 048
     Dates: start: 20130701
  14. BENADRYL [Concomitant]
     Indication: PRURITUS
     Dosage: IV ALSO TKN?1JUL13-ONG?5AUG13-5AUG13?30AUG13-ONG?11JUL2013-
     Route: 048
     Dates: start: 20130701
  15. BENADRYL [Concomitant]
     Indication: RASH
     Dosage: IV ALSO TKN?1JUL13-ONG?5AUG13-5AUG13?30AUG13-ONG?11JUL2013-
     Route: 048
     Dates: start: 20130701
  16. ZOFRAN [Concomitant]
     Indication: NAUSEA
     Route: 048
     Dates: start: 20130718
  17. ZOFRAN [Concomitant]
     Indication: ABDOMINAL PAIN
     Route: 048
     Dates: start: 20130718
  18. COMPAZINE [Concomitant]
     Indication: NAUSEA
     Route: 048
     Dates: start: 20130717
  19. COMPAZINE [Concomitant]
     Indication: ABDOMINAL PAIN
     Route: 048
     Dates: start: 20130717
  20. DIPROLENE [Concomitant]
     Indication: RASH
     Dosage: CREAM
     Dates: start: 20130718
  21. RANITIDINE [Concomitant]
     Indication: PREMEDICATION
     Route: 042
     Dates: start: 20130719
  22. RANITIDINE [Concomitant]
     Indication: PROPHYLAXIS
     Route: 042
     Dates: start: 20130719
  23. ONDANSETRON [Concomitant]
     Indication: PROPHYLAXIS
     Route: 042
     Dates: start: 20130719
  24. ONDANSETRON [Concomitant]
     Indication: PREMEDICATION
     Route: 042
     Dates: start: 20130719
  25. LORAZEPAM [Concomitant]
     Indication: MASTITIS
     Dosage: ORAL ALSO TKN?31JUL-31JUL13?2AUG-2AUG13?31JUL-5AUG13?30AUG13-UNK
     Route: 042
     Dates: start: 20130731
  26. LORAZEPAM [Concomitant]
     Indication: FEBRILE NEUTROPENIA
     Dosage: ORAL ALSO TKN?31JUL-31JUL13?2AUG-2AUG13?31JUL-5AUG13?30AUG13-UNK
     Route: 042
     Dates: start: 20130731
  27. LORAZEPAM [Concomitant]
     Indication: PREMEDICATION
     Dosage: ORAL ALSO TKN?31JUL-31JUL13?2AUG-2AUG13?31JUL-5AUG13?30AUG13-UNK
     Route: 042
     Dates: start: 20130731
  28. FOSAPREPITANT [Concomitant]
     Indication: PREMEDICATION
     Route: 042
     Dates: start: 20130830
  29. LOMOTIL [Concomitant]
     Indication: DIARRHOEA
     Dates: start: 20130928, end: 20130929
  30. NEUPOGEN [Concomitant]
     Indication: PROPHYLAXIS
     Route: 058
     Dates: start: 20130904, end: 20131005

REACTIONS (2)
  - Atrial fibrillation [Recovered/Resolved]
  - Syncope [Recovered/Resolved]
